FAERS Safety Report 25741684 (Version 1)
Quarter: 2025Q3

REPORT INFORMATION
  Report Type: Spontaneous
  Country: JP (occurrence: JP)
  Receive Date: 20250829
  Receipt Date: 20250829
  Transmission Date: 20251021
  Serious: Yes (Other)
  Sender: GILEAD
  Company Number: JP-GILEAD-2025-0726192

PATIENT
  Age: 70 Year
  Sex: Female

DRUGS (1)
  1. BIKTARVY [Suspect]
     Active Substance: BICTEGRAVIR SODIUM\EMTRICITABINE\TENOFOVIR ALAFENAMIDE FUMARATE
     Indication: HIV infection
     Route: 065
     Dates: start: 2019

REACTIONS (2)
  - Rheumatoid arthritis [Recovering/Resolving]
  - Blood HIV RNA fluctuation [Recovering/Resolving]

NARRATIVE: CASE EVENT DATE: 20240501
